FAERS Safety Report 19750092 (Version 1)
Quarter: 2021Q3

REPORT INFORMATION
  Report Type: Spontaneous
  Country: GB (occurrence: GB)
  Receive Date: 20210826
  Receipt Date: 20210826
  Transmission Date: 20211014
  Serious: Yes (Disabling, Other)
  Sender: FDA-Public Use
  Company Number: GB-TEVA-2021-GB-1944536

PATIENT
  Age: 42 Year
  Sex: Female
  Weight: 118.83 kg

DRUGS (3)
  1. CERAZETTE [Concomitant]
  2. PREGABALIN. [Suspect]
     Active Substance: PREGABALIN
     Indication: BACK PAIN
     Dosage: 150 MG
     Route: 048
     Dates: start: 20210813, end: 20210813
  3. CITALOPRAM HYDROBROMIDE. [Concomitant]
     Active Substance: CITALOPRAM HYDROBROMIDE

REACTIONS (10)
  - Body temperature increased [Recovering/Resolving]
  - Nausea [Recovering/Resolving]
  - Feeling hot [Recovering/Resolving]
  - Paraesthesia [Recovering/Resolving]
  - Balance disorder [Not Recovered/Not Resolved]
  - Jaw disorder [Recovering/Resolving]
  - Hyperhidrosis [Recovering/Resolving]
  - Temperature regulation disorder [Recovering/Resolving]
  - Tremor [Recovering/Resolving]
  - Dizziness [Not Recovered/Not Resolved]

NARRATIVE: CASE EVENT DATE: 20210813
